FAERS Safety Report 8063224-0 (Version None)
Quarter: 2012Q1

REPORT INFORMATION
  Report Type: 
  Country: None (occurrence: None)
  Receive Date: 20120117
  Receipt Date: 20120103
  Transmission Date: 20120608
  Serious: Yes (Death)
  Sender: FDA-Public Use
  Company Number: B0773563A

PATIENT
  Age: 36 Year
  Sex: Male

DRUGS (5)
  1. ETHANOL (FORMULATION UNKNOWN) (ALCOHOL) [Suspect]
     Dosage: ORAL
     Route: 048
  2. COCAINE (FORMULATION UNKNOWN) (GENERIC) (COCAINE) [Suspect]
     Dosage: UNKNOWN
  3. ACETAMINOPHEN [Suspect]
     Dosage: ORAL
     Route: 048
  4. PROPRANOLOL HYDROCHLORIDE [Suspect]
     Dosage: ORAL
     Route: 048
  5. AMLODIPINE [Suspect]
     Dosage: ORAL
     Route: 048

REACTIONS (1)
  - COMPLETED SUICIDE [None]
